FAERS Safety Report 8154815-7 (Version None)
Quarter: 2012Q1

REPORT INFORMATION
  Report Type: 
  Country: None (occurrence: None)
  Receive Date: 20120221
  Receipt Date: 20120214
  Transmission Date: 20120608
  Serious: Yes (Other)
  Sender: FDA-Public Use
  Company Number: PHHY2011CA75202

PATIENT
  Sex: Female

DRUGS (9)
  1. VITAMIN D [Concomitant]
     Dosage: UNK UKN, QD
  2. ELAVIL [Concomitant]
     Dosage: UNK UKN, QD
  3. AVENTYL HYDROCHLORIDE [Concomitant]
     Dosage: 10 OT, QHS
  4. GILENYA [Suspect]
     Indication: RELAPSING-REMITTING MULTIPLE SCLEROSIS
     Dosage: 0.5 MG, QD
     Route: 048
     Dates: start: 20110718
  5. ACETAMINOPHEN [Concomitant]
     Dosage: UNK UKN, PRN
  6. CONCERTA [Concomitant]
     Dosage: UNK UKN, QD
  7. SYNTHROID [Concomitant]
     Dosage: UNK UKN, QD
  8. LAMICTAL [Concomitant]
     Dosage: UNK UKN, QD
  9. MIRENA [Concomitant]
     Dosage: UNK UKN, QD

REACTIONS (17)
  - HYPOAESTHESIA [None]
  - FATIGUE [None]
  - BLEPHAROSPASM [None]
  - URINARY RETENTION [None]
  - DIZZINESS [None]
  - MULTIPLE SCLEROSIS RELAPSE [None]
  - LIMB DISCOMFORT [None]
  - FALL [None]
  - PALPITATIONS [None]
  - EYE DISORDER [None]
  - DYSPNOEA [None]
  - MUSCLE SPASMS [None]
  - NAUSEA [None]
  - OCULAR HYPERAEMIA [None]
  - PANIC ATTACK [None]
  - VISION BLURRED [None]
  - VERTIGO [None]
